FAERS Safety Report 9335711 (Version 1)
Quarter: 2013Q2

REPORT INFORMATION
  Report Type: Spontaneous
  Country: FR (occurrence: FR)
  Receive Date: 20130605
  Receipt Date: 20130605
  Transmission Date: 20140414
  Serious: Yes (Hospitalization)
  Sender: FDA-Public Use
  Company Number: FR-ROCHE-1229306

PATIENT
  Age: 34 Year
  Sex: Female

DRUGS (19)
  1. CELLCEPT [Suspect]
     Indication: PRODUCT USED FOR UNKNOWN INDICATION
     Route: 065
  2. ARANESP [Suspect]
     Indication: ANAEMIA
     Route: 058
     Dates: start: 20130130
  3. CORTANCYL [Suspect]
     Indication: PRODUCT USED FOR UNKNOWN INDICATION
     Route: 065
  4. MOTILIUM (FRANCE) [Concomitant]
  5. HYPERIUM [Concomitant]
  6. RENVELA [Concomitant]
  7. CALCIDIA [Concomitant]
  8. KAYEXALATE [Concomitant]
  9. LASILIX [Concomitant]
  10. SODIUM BICARBONATE [Concomitant]
  11. PROGRAF [Concomitant]
  12. AMLOR [Concomitant]
  13. SPASFON [Concomitant]
  14. DOLIPRANE [Concomitant]
  15. UVEDOSE [Concomitant]
  16. TARDYFERON (FRANCE) [Concomitant]
  17. AZITHROMYCIN [Concomitant]
  18. CREON [Concomitant]
  19. INEXIUM [Concomitant]

REACTIONS (1)
  - Myositis [Recovered/Resolved]
